FAERS Safety Report 23341467 (Version 1)
Quarter: 2023Q4

REPORT INFORMATION
  Report Type: Spontaneous
  Country: US (occurrence: None)
  Receive Date: 20231227
  Receipt Date: 20231227
  Transmission Date: 20240110
  Serious: No
  Sender: FDA-Public Use
  Company Number: 2023A286211

PATIENT
  Age: 22362 Day
  Sex: Female

DRUGS (1)
  1. BYDUREON BCISE [Suspect]
     Active Substance: EXENATIDE

REACTIONS (8)
  - Vision blurred [Unknown]
  - Thirst [Unknown]
  - Blood insulin increased [Unknown]
  - Blood glucose increased [Unknown]
  - Fatigue [Unknown]
  - Drug dose omission by device [Unknown]
  - Wrong technique in device usage process [Recovered/Resolved]
  - Device delivery system issue [Unknown]

NARRATIVE: CASE EVENT DATE: 20231215
